FAERS Safety Report 9249133 (Version 1)
Quarter: 2013Q1

REPORT INFORMATION
  Report Type: Spontaneous
  Country: US (occurrence: None)
  Receive Date: 20130305
  Receipt Date: 20130305
  Transmission Date: 20140127
  Serious: Yes (Other)
  Sender: FDA-Public Use
  Company Number: 163-21880-12100868

PATIENT
  Age: 76 Year
  Sex: Male

DRUGS (24)
  1. REVLIMID [Concomitant]
     Indication: PLASMA CELL MYELOMA
     Dosage: 15 MG, 1 IN 1 D, PO
     Route: 048
     Dates: start: 20110203
  2. ALBUTEROL (SALBUTAMOL) [Concomitant]
  3. ALLOPURINOL [Concomitant]
  4. AMLODIPINE (AMLODIPINE) [Concomitant]
  5. ARTIFICIAL TEARS (ARTIFICIAL TEARS) [Concomitant]
  6. ASMANEX [Concomitant]
  7. ASA (ACETYLSALICYLIC ACID) [Concomitant]
  8. BECONASE (BECLOMETASONE DIPROPIONATE) [Concomitant]
  9. BIAXIN (CLARITHROMYCIN) [Concomitant]
  10. COD- LIVER OIL (COD -LIVER OIL) [Concomitant]
  11. CORTISONE (CORTISONE) [Concomitant]
  12. DECADRON (DEXAMETHASONE) [Concomitant]
  13. FINASTERIDE (FINASTERIDE) [Concomitant]
  14. FISH OIL (FISH OIL) [Concomitant]
  15. FLEXERIL (CYCLOBENZAPRINE HYDROCHLORIDE) [Concomitant]
  16. FLUTICASONE (FLUTICASONE) (UNKNOWN) [Concomitant]
  17. GUAIFENESIN (GUAFENESIN) [Concomitant]
  18. HCTZ (HYDROCHLOROTHIAZIDE) [Concomitant]
  19. LOSARTAN (LOSARTAN) [Concomitant]
  20. MOMETASONE (MOMETASONE) [Concomitant]
  21. OMEPRAZOLE (OMEPRAZOLE) [Concomitant]
  22. POTASSIUM (POTASSIUM) [Concomitant]
  23. PREDNISONE (PREDNISONE) [Concomitant]
  24. RANITIDINE (RANITIDINE) [Concomitant]

REACTIONS (1)
  - Chronic obstructive pulmonary disease [None]
